FAERS Safety Report 16869943 (Version 1)
Quarter: 2019Q3

REPORT INFORMATION
  Report Type: Spontaneous
  Country: FR (occurrence: FR)
  Receive Date: 20190930
  Receipt Date: 20190930
  Transmission Date: 20191005
  Serious: Yes (Death)
  Sender: FDA-Public Use
  Company Number: PHHY2019FR226461

PATIENT
  Age: 70 Year
  Sex: Female

DRUGS (4)
  1. SUNITINIB [Suspect]
     Active Substance: SUNITINIB
     Indication: METASTASES TO BONE
  2. ZOLEDRONATE [Suspect]
     Active Substance: ZOLEDRONIC ACID
     Indication: PROSTATE CANCER
  3. SUNITINIB [Suspect]
     Active Substance: SUNITINIB
     Indication: PROSTATE CANCER
     Route: 065
  4. ZOLEDRONATE [Suspect]
     Active Substance: ZOLEDRONIC ACID
     Indication: METASTASES TO BONE
     Route: 065

REACTIONS (2)
  - Osteonecrosis of jaw [Fatal]
  - Product use in unapproved indication [Unknown]
